FAERS Safety Report 21135160 (Version 5)
Quarter: 2022Q3

REPORT INFORMATION
  Report Type: Report from Study
  Country: JP (occurrence: JP)
  Receive Date: 20220727
  Receipt Date: 20220928
  Transmission Date: 20221026
  Serious: Yes (Hospitalization, Other)
  Sender: FDA-Public Use
  Company Number: JP-ONO-2022JP020128

PATIENT
  Age: 40 Year
  Sex: Female
  Weight: 48.6 kg

DRUGS (14)
  1. ETELCALCETIDE [Suspect]
     Active Substance: ETELCALCETIDE
     Indication: Hyperparathyroidism secondary
     Dosage: 5 MILLIGRAM, Q56H
     Route: 010
     Dates: start: 20191030, end: 20191111
  2. ETELCALCETIDE [Suspect]
     Active Substance: ETELCALCETIDE
     Dosage: 2.5 MILLIGRAM, Q56H
     Route: 010
     Dates: start: 20191113
  3. ROCALTROL [Concomitant]
     Active Substance: CALCITRIOL
     Dosage: 0.5 MICROGRAM, Q84H
     Route: 065
     Dates: end: 20191028
  4. ROCALTROL [Concomitant]
     Active Substance: CALCITRIOL
     Dosage: 0.5 MICROGRAM, Q56H
     Route: 065
     Dates: start: 20191030, end: 20191111
  5. ROCALTROL [Concomitant]
     Active Substance: CALCITRIOL
     Dosage: 1 MICROGRAM, Q56H
     Route: 065
     Dates: start: 20191113, end: 20200413
  6. ROCALTROL [Concomitant]
     Active Substance: CALCITRIOL
     Dosage: 1 MICROGRAM, Q84H
     Route: 065
     Dates: start: 20200415, end: 20201109
  7. ROCALTROL [Concomitant]
     Active Substance: CALCITRIOL
     Dosage: 0.5 MICROGRAM, Q84H
     Route: 065
     Dates: start: 20201111
  8. CALTAN [Concomitant]
     Active Substance: CALCIUM CARBONATE
     Dosage: 1 GRAM, QD
     Route: 065
  9. FOSRENOL [Concomitant]
     Active Substance: LANTHANUM CARBONATE
     Dosage: 750 MILLIGRAM, QD
     Route: 065
  10. FERRIC CITRATE ANHYDROUS [Concomitant]
     Active Substance: FERRIC CITRATE ANHYDROUS
     Dosage: 1500 MILLIGRAM, QD
     Route: 065
  11. MIRCERA [Concomitant]
     Active Substance: METHOXY POLYETHYLENE GLYCOL-EPOETIN BETA
     Dosage: 50 MICROGRAM, Q4WK
     Route: 065
     Dates: end: 20200525
  12. MIRCERA [Concomitant]
     Active Substance: METHOXY POLYETHYLENE GLYCOL-EPOETIN BETA
     Dosage: 100 MICROGRAM, Q4WK
     Route: 065
     Dates: start: 20200527, end: 20200914
  13. MIRCERA [Concomitant]
     Active Substance: METHOXY POLYETHYLENE GLYCOL-EPOETIN BETA
     Dosage: 150 MICROGRAM, Q4WK
     Route: 065
     Dates: start: 20200916, end: 20200928
  14. MIRCERA [Concomitant]
     Active Substance: METHOXY POLYETHYLENE GLYCOL-EPOETIN BETA
     Dosage: 100 MICROGRAM, Q4WK
     Route: 065
     Dates: start: 20200930

REACTIONS (1)
  - Shunt occlusion [Recovered/Resolved]

NARRATIVE: CASE EVENT DATE: 20220409
